FAERS Safety Report 16136933 (Version 3)
Quarter: 2023Q1

REPORT INFORMATION
  Report Type: Spontaneous
  Country: HU (occurrence: HU)
  Receive Date: 20190401
  Receipt Date: 20230221
  Transmission Date: 20230418
  Serious: Yes (Hospitalization, Other)
  Sender: FDA-Public Use
  Company Number: None

PATIENT
  Age: 25 Year
  Sex: Female

DRUGS (9)
  1. METHOTREXATE [Suspect]
     Active Substance: METHOTREXATE
     Indication: Stiff person syndrome
     Route: 065
  2. MITOXANTRONE HYDROCHLORIDE [Suspect]
     Active Substance: MITOXANTRONE HYDROCHLORIDE
     Indication: Stiff person syndrome
     Route: 065
  3. BACLOFEN [Suspect]
     Active Substance: BACLOFEN
     Indication: Stiff person syndrome
     Route: 037
  4. DIAZEPAM [Suspect]
     Active Substance: DIAZEPAM
     Indication: Stiff person syndrome
     Route: 065
  5. HUMAN IMMUNOGLOBULIN G [Suspect]
     Active Substance: HUMAN IMMUNOGLOBULIN G
     Indication: Stiff person syndrome
     Route: 042
  6. METHYLPREDNISOLONE [Suspect]
     Active Substance: METHYLPREDNISOLONE
     Indication: Stiff person syndrome
     Dosage: HIGH DOSE
     Route: 065
  7. DIMETHYL FUMARATE [Suspect]
     Active Substance: DIMETHYL FUMARATE
     Indication: Stiff person syndrome
     Route: 065
  8. AZATHIOPRINE [Suspect]
     Active Substance: AZATHIOPRINE
     Indication: Stiff person syndrome
     Route: 065
  9. GABAPENTIN [Suspect]
     Active Substance: GABAPENTIN
     Indication: Stiff person syndrome
     Route: 065

REACTIONS (9)
  - Drug ineffective [Unknown]
  - Sepsis [Recovered/Resolved]
  - Off label use [Unknown]
  - Leukopenia [Recovered/Resolved]
  - Ileus paralytic [Recovered/Resolved]
  - Thrombocytopenia [Recovered/Resolved]
  - Pneumonia [Recovered/Resolved]
  - Disseminated intravascular coagulation [Recovered/Resolved]
  - Clostridium difficile infection [Recovered/Resolved]
